FAERS Safety Report 26011740 (Version 1)
Quarter: 2025Q4

REPORT INFORMATION
  Report Type: Report from Study
  Country: US (occurrence: US)
  Receive Date: 20251107
  Receipt Date: 20251107
  Transmission Date: 20260117
  Serious: Yes (Hospitalization)
  Sender: BAYER HEALTHCARE PHARMACEUTICALS INC.
  Company Number: US-BAYER-2025A146639

PATIENT
  Age: 61 Year
  Sex: Male

DRUGS (2)
  1. NUBEQA [Suspect]
     Active Substance: DAROLUTAMIDE
     Indication: Prostate cancer metastatic
     Dosage: 600 MG, BID
     Route: 048
     Dates: start: 20250821, end: 202510
  2. LUPRON [Suspect]
     Active Substance: LEUPROLIDE ACETATE

REACTIONS (9)
  - Dehydration [Recovering/Resolving]
  - Vomiting [Recovering/Resolving]
  - Asthenia [Recovering/Resolving]
  - Palpitations [Recovering/Resolving]
  - Fluid retention [Recovering/Resolving]
  - Dizziness [Recovering/Resolving]
  - Constipation [Recovering/Resolving]
  - Feeding disorder [Recovering/Resolving]
  - Pain [Recovering/Resolving]

NARRATIVE: CASE EVENT DATE: 20250101
